FAERS Safety Report 17474647 (Version 1)
Quarter: 2020Q1

REPORT INFORMATION
  Report Type: Spontaneous
  Country: US (occurrence: US)
  Receive Date: 20200228
  Receipt Date: 20200228
  Transmission Date: 20200409
  Serious: Yes (Hospitalization)
  Sender: FDA-Public Use
  Company Number: None

PATIENT
  Age: 11 Year
  Sex: Male

DRUGS (5)
  1. RISPERIDONE. [Suspect]
     Active Substance: RISPERIDONE
     Route: 048
  2. AMPHETAMINE SALTS 20 MG 1 TAB TID [Concomitant]
     Dates: start: 20190715
  3. LAMOTRIGINE 25 MG 2 TAB BID [Concomitant]
     Dates: start: 20191216
  4. GUANFACINE HC ER 3 MG 1 TAB QAM [Concomitant]
     Dates: start: 20190821
  5. CLONIDINE 0.2 MG 1 TAB EVERY NIGHT PRN [Concomitant]
     Dates: start: 20190826

REACTIONS (3)
  - Adverse drug reaction [None]
  - Product substitution issue [None]
  - Abnormal behaviour [None]

NARRATIVE: CASE EVENT DATE: 20200228
